FAERS Safety Report 8001664-6 (Version None)
Quarter: 2011Q4

REPORT INFORMATION
  Report Type: 
  Country: None (occurrence: None)
  Receive Date: 20111222
  Receipt Date: 20111220
  Transmission Date: 20120403
  Serious: Yes (Death)
  Sender: FDA-Public Use
  Company Number: GB-ROCHE-1013525

PATIENT
  Sex: Female

DRUGS (5)
  1. LUCENTIS [Suspect]
     Route: 050
     Dates: start: 20101101
  2. DIGOXIN [Concomitant]
     Dates: start: 20101001
  3. DOCUSATE [Concomitant]
     Dates: start: 20090201
  4. LUCENTIS [Suspect]
     Indication: AGE-RELATED MACULAR DEGENERATION
     Route: 050
     Dates: start: 20090301
  5. MIRTAZAPINE [Concomitant]
     Dates: start: 20110101

REACTIONS (1)
  - LUNG NEOPLASM MALIGNANT [None]
